FAERS Safety Report 9196110 (Version 1)
Quarter: 2013Q1

REPORT INFORMATION
  Report Type: Spontaneous
  Country: US (occurrence: US)
  Receive Date: 20130328
  Receipt Date: 20130328
  Transmission Date: 20140127
  Serious: Yes (Death, Other)
  Sender: FDA-Public Use
  Company Number: US-CELGENEUS-163-21880-13033416

PATIENT
  Sex: 0

DRUGS (3)
  1. REVLIMID [Suspect]
     Indication: PROSTATE CANCER
     Dosage: 25 MILLIGRAM
     Route: 048
  2. SARGRAMOSTIM [Suspect]
     Indication: PROSTATE CANCER
     Dosage: 250 MICROGRAM/SQ. METER
     Route: 058
  3. ASPIRIN [Concomitant]
     Indication: PRODUCT USED FOR UNKNOWN INDICATION
     Dosage: 325 MILLIGRAM
     Route: 048

REACTIONS (23)
  - Death [Fatal]
  - Blood lactate dehydrogenase increased [Unknown]
  - Hyperthyroidism [Unknown]
  - Fatigue [Unknown]
  - Thrombocytopenia [Unknown]
  - Neutropenia [Unknown]
  - Leukopenia [Unknown]
  - Lymphopenia [Unknown]
  - Deep vein thrombosis [Unknown]
  - Pulmonary embolism [Unknown]
  - Injection site reaction [Unknown]
  - Hypothyroidism [Unknown]
  - Anaemia [Unknown]
  - Nausea [Unknown]
  - Vomiting [Unknown]
  - Constipation [Unknown]
  - Diarrhoea [Unknown]
  - Dry skin [Unknown]
  - Rash [Unknown]
  - Pruritus [Unknown]
  - Hypocalcaemia [Unknown]
  - Dysgeusia [Unknown]
  - Prostatic specific antigen increased [Unknown]
